FAERS Safety Report 15998986 (Version 1)
Quarter: 2019Q1

REPORT INFORMATION
  Report Type: Spontaneous
  Country: DK (occurrence: DK)
  Receive Date: 20190223
  Receipt Date: 20190223
  Transmission Date: 20190418
  Serious: Yes (Hospitalization)
  Sender: FDA-Public Use
  Company Number: PHHY2019DK039655

PATIENT
  Age: 74 Year
  Sex: Male

DRUGS (7)
  1. LANSOPRAZOLE. [Concomitant]
     Active Substance: LANSOPRAZOLE
     Indication: GASTRIC ULCER
     Dosage: STYRKE: 30 MG.
     Route: 048
     Dates: start: 20150409
  2. TRIPTORELIN [Concomitant]
     Active Substance: TRIPTORELIN
     Indication: PROSTATE CANCER
     Dosage: STYRKE: 11,25 MG. DOSIS: 1 INJEKTIONSSPR?JTE PN., MINIUM 80 D?GNS INTERNVAL.
     Route: 030
  3. PARACETAMOL [Concomitant]
     Active Substance: ACETAMINOPHEN
     Indication: PAIN
     Dosage: STYRKE: 500 MG.
     Route: 048
     Dates: start: 20151230
  4. CETIRIZINE [Concomitant]
     Active Substance: CETIRIZINE HYDROCHLORIDE
     Indication: RHINITIS ALLERGIC
     Dosage: STYRKE: 10 MG.
     Route: 048
     Dates: start: 20131129
  5. XGEVA [Suspect]
     Active Substance: DENOSUMAB
     Indication: PROSTATE CANCER METASTATIC
     Dosage: 120 MG, QD
     Route: 058
     Dates: start: 20160504, end: 20181206
  6. DUOTRAV [Concomitant]
     Active Substance: TIMOLOL MALEATE\TRAVOPROST
     Indication: GLAUCOMA
     Dosage: STYRKE: 40 MIKROGRAM/ML + 5 MG/ML
     Route: 050
     Dates: start: 20150818
  7. ZOMETA [Suspect]
     Active Substance: ZOLEDRONIC ACID
     Indication: PROSTATE CANCER METASTATIC
     Dosage: 4 MG, QD
     Route: 065
     Dates: start: 20160407

REACTIONS (4)
  - Purulence [Unknown]
  - Osteonecrosis of jaw [Not Recovered/Not Resolved]
  - Swelling face [Unknown]
  - Oral pain [Unknown]

NARRATIVE: CASE EVENT DATE: 2018
